FAERS Safety Report 5072736-3 (Version None)
Quarter: 2006Q3

REPORT INFORMATION
  Report Type: 
  Country: None (occurrence: None)
  Receive Date: 20060807
  Receipt Date: 20060727
  Transmission Date: 20061208
  Serious: Yes (Other)
  Sender: FDA-Public Use
  Company Number: US-JNJFOC-20060705954

PATIENT
  Sex: Female
  Weight: 83.92 kg

DRUGS (12)
  1. FENTANYL TRANSDERMAL SYSTEM [Suspect]
     Indication: PAIN
     Route: 062
  2. AMBIEN [Suspect]
     Indication: SLEEP DISORDER
     Dosage: AT BEDTIME, TABLET, ORAL
     Route: 048
  3. RANITIDINE [Concomitant]
     Route: 048
  4. NEURONTIN [Concomitant]
     Indication: NERVE INJURY
     Route: 048
  5. GABITRIL [Concomitant]
     Indication: NERVOUSNESS
     Route: 048
  6. DIAZEPAM [Concomitant]
     Indication: MUSCLE DISORDER
     Route: 048
  7. SENOKOT [Concomitant]
     Indication: CONSTIPATION
     Dosage: TAKE 2 AT BEDTIME.
     Route: 048
  8. TRAZODONE HCL [Concomitant]
     Indication: DEPRESSION
     Dosage: AT BEDTIME.
     Route: 048
  9. CYMBALTA [Concomitant]
     Indication: DEPRESSION
     Dosage: TWICE DAILY, ORAL
     Route: 048
  10. BELLADONNA AND PHENOBARBITOL [Concomitant]
     Indication: CONSTIPATION
     Dosage: THREE TIMES DAILY, ORAL
  11. LIPITOR [Concomitant]
     Route: 048
  12. LIPITOR [Concomitant]
     Indication: BLOOD CHOLESTEROL INCREASED
     Route: 048

REACTIONS (10)
  - BLADDER DISORDER [None]
  - FALL [None]
  - FEELING ABNORMAL [None]
  - INSOMNIA [None]
  - LOSS OF CONSCIOUSNESS [None]
  - MIDDLE INSOMNIA [None]
  - OEDEMA PERIPHERAL [None]
  - RIB FRACTURE [None]
  - SPINAL COMPRESSION FRACTURE [None]
  - WEIGHT DECREASED [None]
